FAERS Safety Report 6135476-5 (Version None)
Quarter: 2009Q1

REPORT INFORMATION
  Report Type: 
  Country: None (occurrence: None)
  Receive Date: 20090327
  Receipt Date: 20090323
  Transmission Date: 20090719
  Serious: Yes (Hospitalization)
  Sender: FDA-Public Use
  Company Number: A0773880A

PATIENT
  Sex: Female
  Weight: 69.5 kg

DRUGS (4)
  1. LAPATINIB [Suspect]
     Indication: BREAST CANCER
     Dosage: 1000MG PER DAY
     Route: 048
     Dates: start: 20080930
  2. TRASTUZUMAB [Suspect]
     Indication: BREAST CANCER
     Dosage: 6MGK EVERY 3 WEEKS
     Route: 042
     Dates: start: 20080930
  3. NITRENDIPINE [Concomitant]
     Dosage: 1TAB AT NIGHT
     Route: 048
  4. ALPRAZOLAM [Concomitant]
     Dosage: .5MG AT NIGHT

REACTIONS (5)
  - CARDIAC FAILURE [None]
  - DYSPNOEA [None]
  - PLEURAL EFFUSION [None]
  - PRURITUS [None]
  - PULMONARY CONGESTION [None]
